FAERS Safety Report 6293231-X (Version None)
Quarter: 2009Q3

REPORT INFORMATION
  Report Type: 
  Country: None (occurrence: None)
  Receive Date: 20090731
  Receipt Date: 20090720
  Transmission Date: 20100115
  Serious: Yes (Hospitalization)
  Sender: FDA-Public Use
  Company Number: US-ELI_LILLY_AND_COMPANY-US200907004153

PATIENT
  Sex: Female

DRUGS (7)
  1. FORTEO [Suspect]
     Dosage: UNK, UNK
     Dates: start: 20081101
  2. FORTEO [Suspect]
  3. SPIRIVA [Concomitant]
  4. FORADIL [Concomitant]
  5. CLONAZEPAM [Concomitant]
     Dosage: 1/2 TABLET, 3/D
  6. MEGESTROL ACETATE [Concomitant]
     Indication: DECREASED APPETITE
  7. CITALOPRAM HYDROBROMIDE [Concomitant]

REACTIONS (6)
  - ASTHENIA [None]
  - BACK PAIN [None]
  - DEPRESSION [None]
  - DYSPNOEA [None]
  - NERVOUSNESS [None]
  - TREMOR [None]
